FAERS Safety Report 9508322 (Version 1)
Quarter: 2013Q3

REPORT INFORMATION
  Report Type: Spontaneous
  Country: US (occurrence: None)
  Receive Date: 20130905
  Receipt Date: 20130905
  Transmission Date: 20140515
  Serious: Yes (Hospitalization)
  Sender: FDA-Public Use
  Company Number: IMP_06809_2013

PATIENT
  Age: 79 Year
  Sex: Female

DRUGS (1)
  1. DIGOXIN [Suspect]
     Indication: ATRIAL FIBRILLATION

REACTIONS (7)
  - Tachycardia [None]
  - Electrocardiogram QRS complex abnormal [None]
  - Ventricular fibrillation [None]
  - Cardioactive drug level increased [None]
  - Hypokalaemia [None]
  - Blood magnesium increased [None]
  - Toxicity to various agents [None]
